FAERS Safety Report 19288606 (Version 2)
Quarter: 2025Q1

REPORT INFORMATION
  Report Type: Report from Study
  Country: CA (occurrence: CA)
  Receive Date: 20210522
  Receipt Date: 20250204
  Transmission Date: 20250409
  Serious: Yes (Other)
  Sender: TAKEDA
  Company Number: CA-TAKEDA-2021TUS004652

PATIENT
  Age: 47 Year
  Sex: Male

DRUGS (13)
  1. VEDOLIZUMAB [Suspect]
     Active Substance: VEDOLIZUMAB
     Indication: Colitis ulcerative
  2. VEDOLIZUMAB [Suspect]
     Active Substance: VEDOLIZUMAB
  3. VEDOLIZUMAB [Suspect]
     Active Substance: VEDOLIZUMAB
  4. PULMICORT TURBUHALER [Concomitant]
     Active Substance: BUDESONIDE
  5. CORTISONE [Concomitant]
     Active Substance: CORTISONE
  6. PREDNISONE [Concomitant]
     Active Substance: PREDNISONE
  7. Salofalk [Concomitant]
  8. MESALAMINE [Concomitant]
     Active Substance: MESALAMINE
  9. NASONEX [Concomitant]
     Active Substance: MOMETASONE FUROATE
  10. BISOPROLOL [Concomitant]
     Active Substance: BISOPROLOL
  11. ASPIRIN [Concomitant]
     Active Substance: ASPIRIN
  12. CRESTOR [Concomitant]
     Active Substance: ROSUVASTATIN CALCIUM
  13. VASCEPA [Concomitant]
     Active Substance: ICOSAPENT ETHYL

REACTIONS (7)
  - Haematochezia [Unknown]
  - Frequent bowel movements [Recovered/Resolved]
  - Diarrhoea [Recovered/Resolved]
  - Abdominal pain [Recovered/Resolved]
  - Vomiting [Recovered/Resolved]
  - Nausea [Recovered/Resolved]
  - Fatigue [Recovered/Resolved]

NARRATIVE: CASE EVENT DATE: 20241219
